FAERS Safety Report 9064207 (Version 1)
Quarter: 2013Q1

REPORT INFORMATION
  Report Type: Spontaneous
  Country: US (occurrence: US)
  Receive Date: 20130213
  Receipt Date: 20130213
  Transmission Date: 20140127
  Serious: Yes (Death)
  Sender: FDA-Public Use
  Company Number: CHPA2013US002358

PATIENT
  Age: 39 Year
  Sex: Male

DRUGS (8)
  1. ACETAM/DIPHEN CITRATE [Suspect]
     Dosage: UNK, UNK
  2. IBUPROFEN [Suspect]
     Dosage: UNK, UNK
  3. LORAZEPAM [Suspect]
     Dosage: UNK, UNK
  4. ALPRAZOLAM [Suspect]
     Dosage: UNK, UNK
  5. ETHANOL [Suspect]
     Dosage: UNK, UNK
  6. ANDROGENS [Suspect]
     Dosage: UNK, UNK
  7. NANDROLONE [Suspect]
     Dosage: UNK, UNK
  8. METAXALONE [Suspect]
     Dosage: UNK, UNK

REACTIONS (1)
  - Completed suicide [Fatal]
